FAERS Safety Report 5292608-9 (Version None)
Quarter: 2007Q2

REPORT INFORMATION
  Report Type: 
  Country: None (occurrence: None)
  Receive Date: 20070404
  Receipt Date: 20070327
  Transmission Date: 20071010
  Serious: Yes (Other)
  Sender: FDA-Public Use
  Company Number: GXKR2007FR00947

PATIENT
  Age: 24 Year
  Sex: Male
  Weight: 59 kg

DRUGS (1)
  1. VERAPAMIL [Suspect]
     Indication: OBSTRUCTION GASTRIC
     Dosage: 240 MG, UNK, ORAL
     Route: 048
     Dates: start: 20061013, end: 20070129

REACTIONS (3)
  - DRUG EFFECT DECREASED [None]
  - INADEQUATE ANALGESIA [None]
  - OSTEOARTHRITIS [None]
